FAERS Safety Report 24720880 (Version 1)
Quarter: 2024Q4

REPORT INFORMATION
  Report Type: Spontaneous
  Country: ES (occurrence: ES)
  Receive Date: 20241211
  Receipt Date: 20241211
  Transmission Date: 20250115
  Serious: Yes (Hospitalization)
  Sender: SAMSUNG BIOEPIS
  Company Number: None

PATIENT
  Age: 15 Year
  Sex: Female
  Weight: 78 kg

DRUGS (6)
  1. ADALIMUMAB [Suspect]
     Active Substance: ADALIMUMAB
     Indication: Hidradenitis
     Dosage: 2.0 JER PREC C/15 DAYS;
     Route: 058
     Dates: start: 20240823
  2. OMEPRAZOLE [Concomitant]
     Active Substance: OMEPRAZOLE
     Indication: Abdominal pain
     Dosage: 40.0 MG A-DE, 40 MG HARD GASTRO-RESISTANT CAPSULES, 56 CAPSULES (BOTTLE);
     Route: 048
     Dates: start: 20220301
  3. NOLOTIL [Concomitant]
     Indication: Abdominal pain
     Dosage: 575.0 MG DECOCE, 575 MG HARD CAPSULES, 20 CAPSULES;
     Route: 048
     Dates: start: 20220228
  4. EPIDUO FORTE [Concomitant]
     Active Substance: ADAPALENE\BENZOYL PEROXIDE
     Indication: Acne
     Dosage: 1.0 APLIC C/24 H, 3 MG/G + 25 MG/G GEL, 1 MULTIDOSE CONTAINER OF 45 G;
     Route: 061
     Dates: start: 20240720
  5. ALDACTONE [Concomitant]
     Active Substance: SPIRONOLACTONE
     Indication: Hidradenitis
     Dosage: 25.0 MG DE, 25 MG FILM-COATED TABLETS, 50 TABLETS;
     Route: 048
     Dates: start: 20240522
  6. SIBILLA DIARIO [Concomitant]
     Indication: Hidradenitis
     Dosage: 1.0 COMP C/24 H, 2 MG/0.03 MG FILM-COATED TABLETS EFG, 3 X (21+7) TABLETS;
     Route: 048
     Dates: start: 20240522

REACTIONS (2)
  - Pulmonary embolism [Recovering/Resolving]
  - Drug interaction [Recovering/Resolving]

NARRATIVE: CASE EVENT DATE: 20240909
